FAERS Safety Report 21743193 (Version 1)
Quarter: 2022Q4

REPORT INFORMATION
  Report Type: Spontaneous
  Country: GB (occurrence: GB)
  Receive Date: 20221217
  Receipt Date: 20221217
  Transmission Date: 20230112
  Serious: Yes (Other)
  Sender: FDA-Public Use
  Company Number: None

PATIENT
  Age: 79 Year
  Sex: Female
  Weight: 45 kg

DRUGS (6)
  1. LEVOFLOXACIN [Suspect]
     Active Substance: LEVOFLOXACIN
     Indication: Infective exacerbation of bronchiectasis
     Dosage: UNIT DOSE : 250 MG,THERAPY DURATION : 2 DAYS
     Route: 065
     Dates: start: 20221001, end: 20221003
  2. APIXABAN [Concomitant]
     Active Substance: APIXABAN
     Indication: Thrombosis prophylaxis
     Dosage: 5 MILLIGRAM DAILY;  UNIT DOSE :2.5 MG, FREQUENCY ; 2 , FREQUENCY TIME : 1 DAYS,
     Dates: start: 20220706
  3. CODEINE [Concomitant]
     Active Substance: CODEINE
     Indication: Product used for unknown indication
     Dosage: 1 TO 2 TABLETS EVERY FOUR HOURS,  UNIT DOSE : 30 MG
     Dates: start: 20220912
  4. INCRUSE ELLIPTA [Concomitant]
     Active Substance: UMECLIDINIUM BROMIDE
     Indication: Product used for unknown indication
     Dosage: 1 DOSAGE FORMS DAILY; UNIT DOSE : 1 DOSAGE FORMS, FREQUENCY ; 1 , FREQUENCY TIME : 1 DAYS
     Route: 055
     Dates: start: 20220725
  5. FLUTICASONE FUROATE\VILANTEROL TRIFENATATE [Concomitant]
     Active Substance: FLUTICASONE FUROATE\VILANTEROL TRIFENATATE
     Indication: Product used for unknown indication
     Dosage: 1 DOSAGE FORMS DAILY; UNIT DOSE : 1 DOSAGE FORMS, FREQUENCY ; 1 , FREQUENCY TIME : 1 DAYS
     Route: 055
     Dates: start: 20220725
  6. TRELEGY ELLIPTA [Concomitant]
     Active Substance: FLUTICASONE FUROATE\UMECLIDINIUM BROMIDE\VILANTEROL TRIFENATATE
     Indication: Product used for unknown indication
     Dosage: 1 DOSAGE FORMS DAILY; AT NIGHT; TO REPLACE RELVAR AND INCRUSE, UNIT DOSE : 1 DOSAGE FORMS, FREQUENCY
     Route: 055
     Dates: start: 20220719

REACTIONS (5)
  - Tendonitis [Recovered/Resolved]
  - Arthralgia [Recovered/Resolved]
  - Groin pain [Recovered/Resolved]
  - Tendon pain [Recovered/Resolved]
  - Peripheral swelling [Recovered/Resolved]

NARRATIVE: CASE EVENT DATE: 20221003
